FAERS Safety Report 5695360-8 (Version None)
Quarter: 2008Q2

REPORT INFORMATION
  Report Type: 
  Country: None (occurrence: None)
  Receive Date: 20080404
  Receipt Date: 20080328
  Transmission Date: 20081010
  Serious: Yes (Other)
  Sender: FDA-Public Use
  Company Number: US-GENENTECH-258487

PATIENT
  Sex: Female

DRUGS (1)
  1. HERCEPTIN [Suspect]
     Indication: BREAST CANCER

REACTIONS (1)
  - PERICARDITIS [None]
